FAERS Safety Report 5620107-0 (Version None)
Quarter: 2008Q1

REPORT INFORMATION
  Report Type: 
  Country: None (occurrence: None)
  Receive Date: 20080208
  Receipt Date: 20080128
  Transmission Date: 20080703
  Serious: Yes (Hospitalization, Other)
  Sender: FDA-Public Use
  Company Number: FR-WYE-H01505607

PATIENT
  Sex: Female

DRUGS (5)
  1. EUPANTOL [Suspect]
     Indication: GASTROOESOPHAGEAL REFLUX DISEASE
     Route: 048
     Dates: start: 20061010, end: 20070331
  2. METEOSPASMYL [Concomitant]
     Dosage: UNKNOWN
  3. GAVISCON [Concomitant]
     Dosage: UNKNOWN
  4. MOVICOL [Concomitant]
     Dosage: UNKNOWN
     Route: 048
  5. PERIDYS [Concomitant]
     Dosage: UNKNOWN
     Route: 048

REACTIONS (2)
  - DEPRESSED MOOD [None]
  - SUICIDE ATTEMPT [None]
